FAERS Safety Report 11407906 (Version 1)
Quarter: 2015Q3

REPORT INFORMATION
  Report Type: Spontaneous
  Country: US (occurrence: US)
  Receive Date: 20150821
  Receipt Date: 20150821
  Transmission Date: 20151125
  Serious: No
  Sender: FDA-Public Use
  Company Number: US-NOVOPROD-448841

PATIENT
  Age: 81 Year
  Sex: Female

DRUGS (2)
  1. VICTOZA [Suspect]
     Active Substance: LIRAGLUTIDE
     Dosage: UNK
     Route: 058
     Dates: start: 20150421
  2. VICTOZA [Suspect]
     Active Substance: LIRAGLUTIDE
     Indication: TYPE 2 DIABETES MELLITUS
     Dosage: UNK
     Route: 058
     Dates: start: 2014

REACTIONS (3)
  - Pain [Recovered/Resolved]
  - Nausea [Not Recovered/Not Resolved]
  - Blood glucose fluctuation [Not Recovered/Not Resolved]

NARRATIVE: CASE EVENT DATE: 2014
